FAERS Safety Report 10540050 (Version 1)
Quarter: 2014Q4

REPORT INFORMATION
  Report Type: Spontaneous
  Country: US (occurrence: None)
  Receive Date: 20141023
  Receipt Date: 20141023
  Transmission Date: 20150529
  Serious: Yes (Hospitalization)
  Sender: FDA-Public Use
  Company Number: None

PATIENT
  Age: 54 Year
  Sex: Male

DRUGS (2)
  1. QUETIAPINE [Suspect]
     Active Substance: QUETIAPINE
     Indication: SCHIZOAFFECTIVE DISORDER
     Dosage: 600 MG AT BEDTIME PO
     Route: 048
     Dates: start: 20140919, end: 20140920
  2. RISPERIDONE. [Suspect]
     Active Substance: RISPERIDONE
     Indication: SCHIZOAFFECTIVE DISORDER
     Dosage: 2 MG ONCE PO
     Route: 048
     Dates: start: 20140919, end: 20140919

REACTIONS (3)
  - Somnolence [None]
  - Agitation [None]
  - Sedation [None]

NARRATIVE: CASE EVENT DATE: 20140920
